FAERS Safety Report 5950946-8 (Version None)
Quarter: 2008Q4

REPORT INFORMATION
  Report Type: 
  Country: None (occurrence: None)
  Receive Date: 20081112
  Receipt Date: 20081031
  Transmission Date: 20090506
  Serious: Yes (Hospitalization)
  Sender: FDA-Public Use
  Company Number: GB-PFIZER INC-2008084769

PATIENT
  Age: 56 Year
  Sex: Male

DRUGS (10)
  1. GABAPENTIN [Suspect]
  2. FENTANYL [Suspect]
     Indication: PAIN
     Route: 048
  3. HALOPERIDOL [Suspect]
  4. MORPHINE [Suspect]
     Indication: ANALGESIA
  5. HYDROMORPHONE HCL [Suspect]
     Indication: ANALGESIA
     Dosage: DAILY DOSE:25MG
     Route: 058
  6. OXYCONTIN [Suspect]
     Indication: ANALGESIA
  7. HYDROMORPHONE HCL [Suspect]
     Dosage: DAILY DOSE:25MG-FREQ:DAILY
     Route: 058
  8. ACETAMINOPHEN [Concomitant]
  9. ALFENTANIL [Concomitant]
     Route: 058
  10. HYDROMORPHONE HCL [Concomitant]

REACTIONS (6)
  - BACK PAIN [None]
  - DRUG EFFECT DECREASED [None]
  - DRUG WITHDRAWAL SYNDROME [None]
  - INFECTION [None]
  - RENAL IMPAIRMENT [None]
  - THERAPEUTIC AGENT TOXICITY [None]
